FAERS Safety Report 15755997 (Version 1)
Quarter: 2018Q4

REPORT INFORMATION
  Report Type: Spontaneous
  Country: CA (occurrence: CA)
  Receive Date: 20181224
  Receipt Date: 20181224
  Transmission Date: 20190205
  Serious: Yes (Hospitalization, Other)
  Sender: FDA-Public Use
  Company Number: CA-CELLTRION INC.-2018CA021570

PATIENT

DRUGS (12)
  1. INFLECTRA [Suspect]
     Active Substance: INFLIXIMAB-DYYB
     Indication: CROHN^S DISEASE
     Dosage: 400 MG, CYCLIC (EVERY 0,2,6 WEEKS THEN EVERY 8 WEEKS)
     Route: 042
     Dates: start: 20180712
  2. INFLECTRA [Suspect]
     Active Substance: INFLIXIMAB-DYYB
     Dosage: UNK
     Route: 065
     Dates: start: 20180823
  3. INFLECTRA [Suspect]
     Active Substance: INFLIXIMAB-DYYB
     Dosage: 400 MG, CYCLIC (EVERY 0,2,6 WEEKS THEN EVERY 8 WEEKS)
     Route: 042
     Dates: start: 20180726
  4. TUDORZA GENUAIR [Concomitant]
     Active Substance: ACLIDINIUM BROMIDE
     Dosage: UNK
  5. INFLECTRA [Suspect]
     Active Substance: INFLIXIMAB-DYYB
     Dosage: 700 MG, Q 0, 2, 6 WEEKS THEN EVERY 8 WEEKS;
     Route: 042
     Dates: start: 20181207
  6. INFLECTRA [Suspect]
     Active Substance: INFLIXIMAB-DYYB
     Dosage: UNK
     Route: 065
     Dates: start: 20180823
  7. INFLECTRA [Suspect]
     Active Substance: INFLIXIMAB-DYYB
     Dosage: 400 MG, Q 0, 2, 6 WEEKS THEN EVERY 8 WEEKS
     Route: 042
     Dates: start: 20181019
  8. SYMBICORT [Concomitant]
     Active Substance: BUDESONIDE\FORMOTEROL FUMARATE DIHYDRATE
     Dosage: UNK
  9. PANTOPRAZOLE [Concomitant]
     Active Substance: PANTOPRAZOLE
  10. SYNTHROID [Concomitant]
     Active Substance: LEVOTHYROXINE SODIUM
     Dosage: UNK
  11. INFLECTRA [Suspect]
     Active Substance: INFLIXIMAB-DYYB
     Dosage: 400 MG, CYCLIC (EVERY 0,2,6 WEEKS THEN EVERY 8 WEEKS)
     Route: 042
     Dates: start: 20180712
  12. INFLECTRA [Suspect]
     Active Substance: INFLIXIMAB-DYYB
     Dosage: UNK
     Route: 065
     Dates: start: 20180823

REACTIONS (4)
  - Tendonitis [Unknown]
  - Blood pressure fluctuation [Unknown]
  - Musculoskeletal pain [Unknown]
  - Drug level decreased [Unknown]

NARRATIVE: CASE EVENT DATE: 20180712
